FAERS Safety Report 12775113 (Version 1)
Quarter: 2016Q3

REPORT INFORMATION
  Report Type: Spontaneous
  Country: US (occurrence: US)
  Receive Date: 20160923
  Receipt Date: 20160923
  Transmission Date: 20161109
  Serious: Yes (Other)
  Sender: FDA-Public Use
  Company Number: US-PFIZER INC-3073787

PATIENT
  Age: 73 Year
  Sex: Female

DRUGS (3)
  1. CARBOPLATIN. [Suspect]
     Active Substance: CARBOPLATIN
     Indication: ACINIC CELL CARCINOMA OF SALIVARY GLAND
     Dosage: UNK
  2. ETOPOSIDE. [Suspect]
     Active Substance: ETOPOSIDE
     Indication: ACINIC CELL CARCINOMA OF SALIVARY GLAND
     Dosage: UNK
  3. CETUXIMAB [Suspect]
     Active Substance: CETUXIMAB
     Indication: ACINIC CELL CARCINOMA OF SALIVARY GLAND
     Dosage: UNK

REACTIONS (1)
  - Disease progression [Not Recovered/Not Resolved]

NARRATIVE: CASE EVENT DATE: 20150101
